FAERS Safety Report 6464571-6 (Version None)
Quarter: 2009Q4

REPORT INFORMATION
  Report Type: 
  Country: None (occurrence: None)
  Receive Date: 20091201
  Receipt Date: 20091120
  Transmission Date: 20100525
  Serious: Yes (Other)
  Sender: FDA-Public Use
  Company Number: NL-PFIZER INC-2009282917

PATIENT
  Age: 27 Year
  Sex: Female

DRUGS (7)
  1. LYRICA [Suspect]
     Indication: EPILEPSY
     Dosage: 150MG AND 225MG BOTH, ONCE DAILY
     Dates: start: 20090907
  2. LYRICA [Suspect]
     Dosage: 150 MG, 2X/DAY
     Route: 048
     Dates: end: 20090907
  3. TRILEPTAL [Concomitant]
     Indication: EPILEPSY
     Dosage: 600 MG, 4X/DAY
  4. ZELITREX [Concomitant]
     Dosage: 250 MG, 2X/DAY
  5. MOVICOLON [Concomitant]
     Indication: CONSTIPATION
     Dosage: UNK
  6. VITAMIN D [Concomitant]
     Indication: OSTEOPOROSIS
     Dosage: UNK
  7. VESICARE [Concomitant]
     Indication: BLADDER DISORDER
     Dosage: 5 MG, 2X/DAY

REACTIONS (1)
  - ANURIA [None]
